FAERS Safety Report 13386470 (Version 1)
Quarter: 2017Q1

REPORT INFORMATION
  Report Type: Report from Study
  Country: US (occurrence: US)
  Receive Date: 20170330
  Receipt Date: 20170330
  Transmission Date: 20170429
  Serious: Yes (Death, Other)
  Sender: FDA-Public Use
  Company Number: US-009507513-1703USA006849

PATIENT
  Sex: Male

DRUGS (1)
  1. KEYTRUDA [Suspect]
     Active Substance: PEMBROLIZUMAB
     Indication: NASOPHARYNGEAL CANCER
     Dosage: UNK
     Route: 042
     Dates: start: 20160504, end: 20160615

REACTIONS (4)
  - Pain [Unknown]
  - Product use issue [Unknown]
  - Malignant neoplasm progression [Fatal]
  - Weight decreased [Unknown]

NARRATIVE: CASE EVENT DATE: 2016
